FAERS Safety Report 24966142 (Version 1)
Quarter: 2025Q1

REPORT INFORMATION
  Report Type: Report from Study
  Country: US (occurrence: US)
  Receive Date: 20250213
  Receipt Date: 20250213
  Transmission Date: 20250409
  Serious: Yes (Other)
  Sender: SANDOZ
  Company Number: US-SANDOZ-SDZ2023US045277

PATIENT
  Sex: Male
  Weight: 27 kg

DRUGS (3)
  1. OMNITROPE [Suspect]
     Active Substance: SOMATROPIN
     Indication: Short stature
     Dosage: 0.16 ML, QD
     Route: 058
     Dates: start: 20230927
  2. OMNITROPE [Suspect]
     Active Substance: SOMATROPIN
     Dosage: 1.6 MG, QD
     Route: 058
     Dates: start: 20240110
  3. OMNITROPE [Suspect]
     Active Substance: SOMATROPIN
     Dosage: 1.6 MG/KG, QD
     Route: 058
     Dates: start: 20230927

REACTIONS (7)
  - Immunodeficiency [Unknown]
  - Illness [Not Recovered/Not Resolved]
  - Streptococcal infection [Unknown]
  - Injection site haemorrhage [Not Recovered/Not Resolved]
  - Distractibility [Not Recovered/Not Resolved]
  - Injection site pain [Not Recovered/Not Resolved]
  - Product dose omission issue [Unknown]

NARRATIVE: CASE EVENT DATE: 20240101
